FAERS Safety Report 17701610 (Version 3)
Quarter: 2025Q3

REPORT INFORMATION
  Report Type: Spontaneous
  Country: EU (occurrence: EU)
  Receive Date: 20200424
  Receipt Date: 20250901
  Transmission Date: 20251021
  Serious: Yes (Hospitalization, Other)
  Sender: AUROBINDO
  Company Number: EU-002147023-NVSC2020CZ097131

PATIENT
  Age: 71 Year
  Sex: Male

DRUGS (2)
  1. AZITHROMYCIN [Suspect]
     Active Substance: AZITHROMYCIN
     Indication: Adjuvant therapy
     Route: 065
  2. ROFLUMILAST [Concomitant]
     Active Substance: ROFLUMILAST
     Indication: Product used for unknown indication
     Route: 065

REACTIONS (6)
  - Sputum increased [Unknown]
  - Chronic obstructive pulmonary disease [Unknown]
  - Bronchiectasis [Unknown]
  - Treatment noncompliance [Unknown]
  - Condition aggravated [Unknown]
  - Eosinophil count decreased [Unknown]
